FAERS Safety Report 9004379 (Version 2)
Quarter: 2013Q1

REPORT INFORMATION
  Report Type: Report from Study
  Country: US (occurrence: US)
  Receive Date: 20130108
  Receipt Date: 20130212
  Transmission Date: 20140127
  Serious: Yes (Death)
  Sender: FDA-Public Use
  Company Number: US-ACTELION-A-US2012-77019

PATIENT
  Age: 53 Year
  Sex: Female

DRUGS (2)
  1. VELETRI [Suspect]
     Indication: PULMONARY ARTERIAL HYPERTENSION
     Dosage: 28.3 NG/KG, PER MIN
     Route: 042
     Dates: start: 20100825, end: 20121228
  2. REVATIO [Concomitant]

REACTIONS (2)
  - Right ventricular failure [Fatal]
  - Disease progression [Unknown]
